FAERS Safety Report 9686250 (Version 2)
Quarter: 2013Q4

REPORT INFORMATION
  Report Type: Spontaneous
  Country: US (occurrence: US)
  Receive Date: 20131113
  Receipt Date: 20131113
  Transmission Date: 20140711
  Serious: Yes (Hospitalization)
  Sender: FDA-Public Use
  Company Number: US-CUBIST PHARMACEUTICAL, INC.-2013CBST000121

PATIENT
  Sex: 0

DRUGS (2)
  1. CUBICIN [Suspect]
     Indication: STAPHYLOCOCCAL INFECTION
     Dosage: 6 MG/KG, X1, INFUSION
     Route: 042
  2. CUBICIN [Suspect]
     Indication: LOCALISED INFECTION

REACTIONS (1)
  - Anaphylactic reaction [Recovered/Resolved]
